FAERS Safety Report 23896156 (Version 2)
Quarter: 2024Q2

REPORT INFORMATION
  Report Type: Spontaneous
  Country: RU (occurrence: RU)
  Receive Date: 20240524
  Receipt Date: 20240529
  Transmission Date: 20240717
  Serious: Yes (Other)
  Sender: FDA-Public Use
  Company Number: RU-JNJFOC-20240550030

PATIENT
  Age: 31 Year
  Sex: Male

DRUGS (1)
  1. MINOXIDIL [Suspect]
     Active Substance: MINOXIDIL
     Indication: Androgenetic alopecia
     Dosage: STARTED ABOUT 8 YEARS AGO
     Route: 061
     Dates: end: 2022

REACTIONS (4)
  - Ocular hypertension [Recovered/Resolved]
  - Swelling face [Recovering/Resolving]
  - Arthralgia [Recovering/Resolving]
  - Weight increased [Recovering/Resolving]

NARRATIVE: CASE EVENT DATE: 20220101
